FAERS Safety Report 5416471-8 (Version None)
Quarter: 2007Q3

REPORT INFORMATION
  Report Type: 
  Country: None (occurrence: None)
  Receive Date: 20070814
  Receipt Date: 20070814
  Transmission Date: 20080115
  Serious: No
  Sender: FDA-Public Use
  Company Number: None

PATIENT
  Age: 24 Year
  Sex: Female
  Weight: 88.905 kg

DRUGS (2)
  1. HUMATE-P [Suspect]
     Indication: PREOPERATIVE CARE
     Dosage: 4000 ONCE IV
     Route: 042
     Dates: start: 20070813, end: 20070813
  2. HUMATE-P [Suspect]
     Indication: VON WILLEBRAND'S DISEASE
     Dosage: 4000 ONCE IV
     Route: 042
     Dates: start: 20070813, end: 20070813

REACTIONS (2)
  - MEDICATION ERROR [None]
  - UNDERDOSE [None]
